FAERS Safety Report 10050678 (Version 1)
Quarter: 2014Q2

REPORT INFORMATION
  Report Type: Spontaneous
  Country: US (occurrence: US)
  Receive Date: 20140401
  Receipt Date: 20140401
  Transmission Date: 20141212
  Serious: No
  Sender: FDA-Public Use
  Company Number: US-ASTRAZENECA-2013SE65677

PATIENT
  Age: 84 Year
  Sex: Female
  Weight: 49.9 kg

DRUGS (1)
  1. NEXIUM [Suspect]
     Indication: ABDOMINAL PAIN UPPER
     Route: 048
     Dates: start: 20130821, end: 20130824

REACTIONS (2)
  - Abdominal pain [Recovered/Resolved]
  - Drug ineffective [Unknown]
